FAERS Safety Report 4849735-7 (Version None)
Quarter: 2005Q4

REPORT INFORMATION
  Report Type: 
  Country: None (occurrence: None)
  Receive Date: 20051207
  Receipt Date: 20051124
  Transmission Date: 20060501
  Serious: Yes (Hospitalization)
  Sender: FDA-Public Use
  Company Number: 2005103062

PATIENT
  Age: 20 Year
  Sex: Male

DRUGS (6)
  1. GENOTONORM             (SOMATROPIN) [Suspect]
     Indication: HYPOPITUITARISM
     Dosage: 0.4 MG (0.4 MG, DAILY), SUBCUTANEOUS
     Route: 058
     Dates: start: 20021023, end: 20050314
  2. NORDITROPIN [Suspect]
     Indication: HYPOPITUITARISM
     Dates: start: 20050301
  3. LEVOTHYROXINE SODIUM [Concomitant]
  4. MINIRIN [Concomitant]
  5. ANDROTARDYL                            (TESTOSTERONE ENANTATE) [Concomitant]
  6. OXAZEPAM [Concomitant]

REACTIONS (5)
  - CEREBRAL DISORDER [None]
  - DRUG TOXICITY [None]
  - HALLUCINATION [None]
  - LANGERHANS' CELL GRANULOMATOSIS [None]
  - SOMNOLENCE [None]
